FAERS Safety Report 13971964 (Version 1)
Quarter: 2017Q3

REPORT INFORMATION
  Report Type: Spontaneous
  Country: US (occurrence: US)
  Receive Date: 20170914
  Receipt Date: 20170914
  Transmission Date: 20171128
  Serious: Yes (Hospitalization, Other)
  Sender: FDA-Public Use
  Company Number: US-BEH-2017083483

PATIENT
  Age: 47 Year
  Sex: Female
  Weight: 70.75 kg

DRUGS (16)
  1. FERROUS SULFATE. [Concomitant]
     Active Substance: FERROUS SULFATE
  2. HAEMATE P [Suspect]
     Active Substance: ANTIHEMOPHILIC FACTOR HUMAN
     Indication: VON WILLEBRAND^S DISEASE
     Dosage: 5600 RCOF IU, TIW
     Route: 042
  3. PROVENTIL [Concomitant]
     Active Substance: ALBUTEROL
  4. ZOFRAN [Concomitant]
     Active Substance: ONDANSETRON HYDROCHLORIDE
  5. HYDROMORPHONE [Concomitant]
     Active Substance: HYDROMORPHONE
  6. LEVAQUIN [Concomitant]
     Active Substance: LEVOFLOXACIN
  7. SPIRONOLACTONE. [Concomitant]
     Active Substance: SPIRONOLACTONE
  8. PREMARIN [Concomitant]
     Active Substance: ESTROGENS, CONJUGATED
  9. REQUIP [Concomitant]
     Active Substance: ROPINIROLE HYDROCHLORIDE
  10. CLONAZEPAM. [Concomitant]
     Active Substance: CLONAZEPAM
  11. SUCRALFATE. [Concomitant]
     Active Substance: SUCRALFATE
  12. CARVEDILOL. [Concomitant]
     Active Substance: CARVEDILOL
  13. LISINOPRIL. [Concomitant]
     Active Substance: LISINOPRIL
  14. NEURONTIN [Concomitant]
     Active Substance: GABAPENTIN
  15. LONASEN [Concomitant]
     Active Substance: BLONANSERIN
  16. DURAGESIC [Concomitant]
     Active Substance: FENTANYL

REACTIONS (2)
  - Pneumonia [Unknown]
  - Central venous catheter removal [Unknown]

NARRATIVE: CASE EVENT DATE: 2017
